FAERS Safety Report 17901663 (Version 1)
Quarter: 2020Q2

REPORT INFORMATION
  Report Type: Spontaneous
  Country: US (occurrence: US)
  Receive Date: 20200616
  Receipt Date: 20200616
  Transmission Date: 20200714
  Serious: Yes (Other)
  Sender: FDA-Public Use
  Company Number: US-AKORN PHARMACEUTICALS-2020AKN00714

PATIENT
  Age: 20 Year
  Sex: Female
  Weight: 49.89 kg

DRUGS (7)
  1. MYORISAN [Suspect]
     Active Substance: ISOTRETINOIN
     Dosage: 60 MG, 1X/DAY WITH THE LARGEST MEAL OF THE DAY
     Route: 048
     Dates: start: 20200220, end: 20200504
  2. DASETTA 7/7/7 [Concomitant]
     Active Substance: ETHINYL ESTRADIOL\NORETHINDRONE
     Dosage: 1 TABLETS, 1X/DAY
     Route: 048
  3. MYORISAN [Suspect]
     Active Substance: ISOTRETINOIN
     Indication: ACNE
     Dosage: UNK
     Dates: start: 20200122, end: 2020
  4. MYORISAN [Suspect]
     Active Substance: ISOTRETINOIN
     Indication: ACNE
     Dosage: UNK
     Dates: start: 20191220
  5. REWETTING DROPS [Concomitant]
     Dosage: UNK, AS NEEDED
  6. ADDERALL ER (EXTENDED RELEASE) [Concomitant]
     Dosage: 40 MG, 1X/DAY AS NEEDED
     Route: 048
  7. VISINE ADVANCED RELIEF [Concomitant]
     Active Substance: DEXTRAN 70\POLYETHYLENE GLYCOL 400\POVIDONE\TETRAHYDROZOLINE HYDROCHLORIDE

REACTIONS (9)
  - Dry skin [Not Recovered/Not Resolved]
  - Cheilitis [Not Recovered/Not Resolved]
  - Acne [Not Recovered/Not Resolved]
  - Idiopathic intracranial hypertension [Recovering/Resolving]
  - Optic disc drusen [Not Recovered/Not Resolved]
  - Lip dry [Not Recovered/Not Resolved]
  - Dry eye [Not Recovered/Not Resolved]
  - Nasal dryness [Not Recovered/Not Resolved]
  - Deafness bilateral [Recovering/Resolving]

NARRATIVE: CASE EVENT DATE: 202003
